FAERS Safety Report 21850159 (Version 1)
Quarter: 2023Q1

REPORT INFORMATION
  Report Type: Spontaneous
  Country: BR (occurrence: BR)
  Receive Date: 20230111
  Receipt Date: 20230111
  Transmission Date: 20230418
  Serious: Yes (Other)
  Sender: FDA-Public Use
  Company Number: BR-AMERICAN REGENT INC-2022003699

PATIENT
  Age: 76 Year
  Sex: Female
  Weight: 68 kg

DRUGS (8)
  1. VENOFER [Suspect]
     Active Substance: IRON SUCROSE
     Indication: Anaemia
     Dosage: 100 MILLIGRAM (1 AMPOULE) DILUTED IN 100ML OF SERUM (100 MG, EVERY 2 DAYS)
     Dates: start: 20221206, end: 202212
  2. ATENOLOL [Concomitant]
     Active Substance: ATENOLOL
     Indication: Hypertension
     Dosage: 1 DOSAGE FORMS (DAILY)
     Route: 048
  3. OLMESARTAN MEDOXOMIL [Concomitant]
     Active Substance: OLMESARTAN MEDOXOMIL
     Indication: Hypertension
     Dosage: 1 DOSAGE FORMS (DAILY)
     Route: 048
     Dates: start: 2020
  4. INDAPEN [INDAPAMIDE] [Concomitant]
     Indication: Blood cholesterol abnormal
     Dosage: 1 DOSAGE FORMS (DAILY)
     Route: 048
     Dates: start: 2022
  5. ROSUVASTATIN CALCIUM [Concomitant]
     Active Substance: ROSUVASTATIN CALCIUM
     Indication: Product used for unknown indication
     Dosage: 1 DOSAGE FORMS (DAILY)
     Route: 048
     Dates: start: 2020
  6. VI FERRIN [Concomitant]
     Indication: Anaemia
     Dosage: 1 DOSAGE FORMS (DAILY)
     Route: 048
  7. RIVAROXABAN [Concomitant]
     Active Substance: RIVAROXABAN
     Indication: Postoperative care
     Dosage: 1 DOSAGE FORMS (DAILY)
     Route: 048
     Dates: start: 20221216
  8. CIPROFLOXACIN [Concomitant]
     Active Substance: CIPROFLOXACIN
     Indication: Postoperative care
     Dosage: 2 DOSAGE FORMS (DAILY)
     Route: 048
     Dates: start: 20221216

REACTIONS (9)
  - Shock [Not Recovered/Not Resolved]
  - Drug ineffective [Unknown]
  - Procedural haemorrhage [Unknown]
  - Skin discolouration [Not Recovered/Not Resolved]
  - Syncope [Recovered/Resolved]
  - Nausea [Not Recovered/Not Resolved]
  - Asthenia [Not Recovered/Not Resolved]
  - Dizziness [Not Recovered/Not Resolved]
  - Myalgia [Unknown]

NARRATIVE: CASE EVENT DATE: 20221201
